FAERS Safety Report 9682176 (Version 1)
Quarter: 2013Q4

REPORT INFORMATION
  Report Type: Report from Study
  Country: US (occurrence: US)
  Receive Date: 20131111
  Receipt Date: 20131111
  Transmission Date: 20140711
  Serious: Yes (Other)
  Sender: FDA-Public Use
  Company Number: US-ROCHE-1300547

PATIENT
  Sex: Male

DRUGS (11)
  1. XOLAIR [Suspect]
     Indication: ASTHMA
     Route: 058
  2. ALBUTEROL [Concomitant]
     Route: 065
  3. PREDNISONE [Concomitant]
     Route: 065
  4. PREDNISONE [Concomitant]
     Route: 048
     Dates: start: 20131016
  5. PREDNISONE [Concomitant]
     Route: 048
  6. PREDNISONE [Concomitant]
     Route: 048
  7. PREDNISONE [Concomitant]
     Route: 048
     Dates: end: 20131106
  8. FLONASE [Concomitant]
  9. SYMBICORT [Concomitant]
     Route: 065
  10. MONTELUKAST [Concomitant]
  11. SPIRIVA [Concomitant]

REACTIONS (8)
  - Headache [Not Recovered/Not Resolved]
  - Paraesthesia [Unknown]
  - Hypoaesthesia [Not Recovered/Not Resolved]
  - Allergic granulomatous angiitis [Unknown]
  - Cough [Not Recovered/Not Resolved]
  - Paraesthesia [Unknown]
  - Vibratory sense increased [Unknown]
  - Drug ineffective [Unknown]
